FAERS Safety Report 20381990 (Version 1)
Quarter: 2022Q1

REPORT INFORMATION
  Report Type: Spontaneous
  Country: US (occurrence: None)
  Receive Date: 20220126
  Receipt Date: 20220126
  Transmission Date: 20220423
  Serious: Yes (Hospitalization)
  Sender: FDA-Public Use
  Company Number: None

PATIENT
  Age: 89 Year
  Sex: Female
  Weight: 59 kg

DRUGS (13)
  1. CASIRIVIMAB [Suspect]
     Active Substance: CASIRIVIMAB
     Indication: COVID-19
     Dosage: FREQUENCY : ONCE;?
     Route: 042
     Dates: start: 20211011, end: 20211011
  2. IMDEVIMAB [Suspect]
     Active Substance: IMDEVIMAB
     Indication: COVID-19
     Dosage: FREQUENCY : ONCE;?
     Route: 042
     Dates: start: 20211011, end: 20211011
  3. AZITHROMYCIN [Concomitant]
     Active Substance: AZITHROMYCIN
     Dates: start: 20211011, end: 20211015
  4. CEFTRIAXONE [Concomitant]
     Active Substance: CEFTRIAXONE
     Dates: start: 20211011, end: 20211018
  5. DEXAMETHASONE [Concomitant]
     Active Substance: DEXAMETHASONE
     Dates: start: 20211011, end: 20211018
  6. COMBIVENT RESPIMAT [Concomitant]
     Active Substance: ALBUTEROL SULFATE\IPRATROPIUM BROMIDE
     Dates: end: 20211018
  7. OLUMIANT [Concomitant]
     Active Substance: BARICITINIB
     Dates: end: 20211012
  8. ENOXAPARIN [Concomitant]
     Active Substance: ENOXAPARIN
     Dates: end: 20211013
  9. CHOLECALCIFEROL [Concomitant]
     Active Substance: CHOLECALCIFEROL
     Dates: end: 20211018
  10. FUROSEMIDE [Concomitant]
     Active Substance: FUROSEMIDE
     Dates: end: 20211013
  11. Benzonatate (Tessalon) [Concomitant]
     Dates: end: 20211018
  12. Guaifenesin (Robitussin) [Concomitant]
     Dates: end: 20211018
  13. NS 0.9% Infusion [Concomitant]
     Dates: end: 20211016

REACTIONS (12)
  - Blood pressure increased [None]
  - Nausea [None]
  - Vomiting [None]
  - Diarrhoea [None]
  - Oxygen saturation decreased [None]
  - Acute respiratory distress syndrome [None]
  - Hypoxia [None]
  - Cardiac failure acute [None]
  - Acute kidney injury [None]
  - COVID-19 pneumonia [None]
  - Essential hypertension [None]
  - Pulmonary hypertension [None]

NARRATIVE: CASE EVENT DATE: 20211011
